FAERS Safety Report 18541456 (Version 1)
Quarter: 2020Q4

REPORT INFORMATION
  Report Type: Spontaneous
  Country: IT (occurrence: IT)
  Receive Date: 20201124
  Receipt Date: 20201124
  Transmission Date: 20210114
  Serious: Yes (Other)
  Sender: FDA-Public Use
  Company Number: IT-SA-2020SA300824

PATIENT

DRUGS (1)
  1. CLEXANE [Suspect]
     Active Substance: ENOXAPARIN SODIUM
     Indication: THROMBOSIS
     Dosage: UNK
     Dates: start: 20161213, end: 20170216

REACTIONS (2)
  - Gastrooesophageal sphincter insufficiency [Not Recovered/Not Resolved]
  - Enlarged uvula [Not Recovered/Not Resolved]

NARRATIVE: CASE EVENT DATE: 20170210
